FAERS Safety Report 9779457 (Version 1)
Quarter: 2013Q4

REPORT INFORMATION
  Report Type: Spontaneous
  Country: FR (occurrence: FR)
  Receive Date: 20131223
  Receipt Date: 20131223
  Transmission Date: 20140711
  Serious: Yes (Death)
  Sender: FDA-Public Use
  Company Number: FR-PFIZER INC-2013364509

PATIENT
  Age: 80 Year
  Sex: Male

DRUGS (12)
  1. SOLU-MEDROL [Suspect]
     Dosage: 80 MG, SINGLE
     Route: 042
     Dates: start: 20131025, end: 20131025
  2. MABTHERA [Suspect]
     Indication: MANTLE CELL LYMPHOMA
     Dosage: 375 MG/M2, SINGLE
     Route: 042
     Dates: start: 20131025, end: 20131025
  3. LEVACT [Suspect]
     Indication: MANTLE CELL LYMPHOMA
     Dosage: 90 MG/M2, SINGLE (STRENGTH 2.5 MG/ML)
     Route: 042
     Dates: start: 20131025, end: 20131025
  4. FASTURTEC [Suspect]
     Indication: TUMOUR LYSIS SYNDROME
     Dosage: 50 ML, SINGLE, AS PREVENTION (STRENGTH 1.5 MG/ML)
     Route: 042
     Dates: start: 20131024, end: 20131024
  5. ZOPHREN [Suspect]
     Indication: PROPHYLAXIS OF NAUSEA AND VOMITING
     Dosage: 8 MG (4DF), SINGLE
     Route: 042
     Dates: start: 20131025, end: 20131025
  6. PRAVASTATIN SODIUM [Concomitant]
     Dosage: UNK
     Route: 048
  7. LASILIX [Concomitant]
     Dosage: UNK
     Route: 048
  8. XYZALL [Concomitant]
     Dosage: 10 MG, 1X/DAY
     Route: 048
  9. CALCIPARIN [Concomitant]
     Dosage: 0.2 ML, 2X/DAY
     Route: 058
  10. FLECAINE [Concomitant]
     Dosage: UNK
     Route: 048
  11. DISCOTRINE [Concomitant]
     Dosage: UNK
     Route: 062
  12. HYDROCORTISONE [Concomitant]
     Dosage: 200 MG, SINGLE
     Dates: start: 20131025, end: 20131025

REACTIONS (2)
  - Death [Fatal]
  - Arrhythmia [Fatal]
